FAERS Safety Report 6987734-X (Version None)
Quarter: 2010Q3

REPORT INFORMATION
  Report Type: 
  Country: None (occurrence: None)
  Receive Date: 20100914
  Receipt Date: 20100907
  Transmission Date: 20110219
  Serious: Yes (Hospitalization, Other)
  Sender: FDA-Public Use
  Company Number: TPA2010A04452

PATIENT
  Age: 72 Year
  Sex: Male
  Weight: 95.45 kg

DRUGS (7)
  1. DEXLANSOPRAZOLE [Suspect]
     Indication: GASTROOESOPHAGEAL REFLUX DISEASE
     Dosage: 60 MG, 1 IN 1 D, PER ORAL
     Route: 048
     Dates: start: 20091001, end: 20100301
  2. ACTOS [Suspect]
     Dosage: UNK UNKNOWN PER ORAL
     Route: 048
     Dates: start: 20020301
  3. PLAVIX [Suspect]
     Indication: ISCHAEMIC HEART DISEASE PROPHYLAXIS
     Dosage: 75 MG, 1 IN 1 D, PER ORAL
     Route: 048
     Dates: start: 20020301, end: 20100127
  4. ASPIRIN [Suspect]
     Indication: CEREBROVASCULAR ACCIDENT PROPHYLAXIS
     Dosage: 81 MG, 1 IN 1 D, PER ORAL
     Route: 048
     Dates: start: 20020301
  5. LEXAPRO [Concomitant]
  6. GLIMEPIRIDE [Concomitant]
  7. METFORMIN HCL [Concomitant]

REACTIONS (2)
  - CEREBROVASCULAR ACCIDENT [None]
  - TREATMENT NONCOMPLIANCE [None]
